FAERS Safety Report 5465472-2 (Version None)
Quarter: 2007Q3

REPORT INFORMATION
  Report Type: 
  Country: None (occurrence: None)
  Receive Date: 20070920
  Receipt Date: 20070910
  Transmission Date: 20080115
  Serious: Yes (Death, Life-Threatening, Hospitalization, Disabling)
  Sender: FDA-Public Use
  Company Number: MEDI-0005810

PATIENT
  Age: 18 Month
  Sex: Female
  Weight: 6.3504 kg

DRUGS (21)
  1. SYNAGIS [Suspect]
     Dosage: SEE IMAGE
     Route: 030
     Dates: start: 20061005, end: 20070323
  2. SYNAGIS [Suspect]
     Dosage: SEE IMAGE
     Route: 030
     Dates: start: 20031221
  3. SYNAGIS [Suspect]
     Dosage: SEE IMAGE
     Route: 030
     Dates: start: 20061005
  4. SYNAGIS [Suspect]
     Dosage: SEE IMAGE
     Route: 030
     Dates: start: 20061102
  5. SYNAGIS [Suspect]
     Dosage: SEE IMAGE
     Route: 030
     Dates: start: 20061201
  6. SYNAGIS [Suspect]
     Dosage: SEE IMAGE
     Route: 030
     Dates: start: 20070126
  7. SYNAGIS [Suspect]
     Dosage: SEE IMAGE
     Route: 030
     Dates: start: 20070223
  8. SYNAGIS [Suspect]
  9. SYNAGIS [Suspect]
  10. SYNAGIS [Suspect]
  11. SYNAGIS [Suspect]
  12. SYNAGIS [Suspect]
  13. SYNAGIS [Suspect]
  14. ZANTAC 150 [Concomitant]
  15. LASIX [Concomitant]
  16. CLARINEX (PSEUDOEPHEDRINE SULFATE, LORATADINE) [Concomitant]
  17. ORAPRED (PREDNISOLONE) [Concomitant]
  18. HYDROCHLOROTHIAZIDE SPIRONOLACTONE (SPIRONOLACTONE) [Concomitant]
  19. PULMICORT [Concomitant]
  20. ATROVENT [Concomitant]
  21. XOPENEX [Concomitant]

REACTIONS (8)
  - BRAIN DAMAGE [None]
  - CONJUNCTIVITIS [None]
  - INTESTINAL PERFORATION [None]
  - OTITIS MEDIA [None]
  - RESPIRATORY DISTRESS [None]
  - RESPIRATORY FAILURE [None]
  - RESPIRATORY SYNCYTIAL VIRUS INFECTION [None]
  - UPPER RESPIRATORY TRACT INFECTION [None]
